FAERS Safety Report 4552260-4 (Version None)
Quarter: 2004Q4

REPORT INFORMATION
  Report Type: 
  Country: None (occurrence: None)
  Receive Date: 20041217
  Receipt Date: 20041026
  Transmission Date: 20050328
  Serious: No
  Sender: FDA-Public Use
  Company Number: 2004-BP-11217BP

PATIENT
  Age: 61 Year
  Sex: Male

DRUGS (7)
  1. SPIRIVA [Suspect]
     Indication: CHRONIC OBSTRUCTIVE AIRWAYS DISEASE
     Dosage: 18 MCG (18 MCG), IH
     Route: 055
  2. PROSCAR [Concomitant]
  3. BUDESONIDE (BUDESONIDE) [Concomitant]
  4. ALBUTEROL [Concomitant]
  5. IPATROPIUM [Concomitant]
  6. GLYBURIDE [Concomitant]
  7. RAMIPRIL [Concomitant]

REACTIONS (2)
  - DRY MOUTH [None]
  - URINARY RETENTION [None]
